FAERS Safety Report 7295430 (Version 2)
Quarter: 2013Q4

REPORT INFORMATION
  Report Type: Spontaneous
  Country: US (occurrence: None)
  Receive Date: 20100204
  Receipt Date: 20131120
  Transmission Date: 20140711
  Serious: Yes (Other)
  Sender: FDA-Public Use
  Company Number: 2009S1006256

PATIENT
  Age: 64 Year
  Sex: Female
  Weight: 54.43 kg

DRUGS (13)
  1. FLEET PHOSPHO-SODA [Suspect]
     Indication: COLONOSCOPY
     Dosage: 2 IN 24 HOURS
     Route: 048
     Dates: start: 20080330, end: 20080330
  2. AVALIDE [Concomitant]
  3. PRAVASTATIN [Concomitant]
  4. ACID JELLY GEL (ACETIC ACID, RICINOLEIC ACID, HYDROXYQUINOLINE) [Concomitant]
  5. ALBUTEROL (SALBUTAMOL) (90 MICROGRAM, INHALANT) [Concomitant]
  6. CALCIUM CITRATE (CALCIUM CITRATE) (500 MILLIGRAM, CAPSULE) [Concomitant]
  7. ESTER C (ASCORBIC ACID) [Concomitant]
  8. GLUCOSAMINE CHONDROITIN COMPLEX (ASCORBIC ACID, CHONDROITIN SULFATE, GLUCOSAMINE SULFATE POTASSIUM CHLORIDE) [Concomitant]
  9. MULTIVITAMINS MINERALS (VITAMINS NOS, MINERALS NOS) [Concomitant]
  10. VITAMIN B COMPLEX (VITAMIN B COMPLEX) [Concomitant]
  11. VITAMIN E (TOCOPHEROL) (400 IU (INTERNATIONAL UNIT)) [Concomitant]
  12. TYLENOL ARTHRITIS PAIN (PARACETAMOL) (650 MILLIGRAM, TABLET) [Concomitant]
  13. MAGNESIUM ASPARTATE (MAGNESIUM ASPARTATE) (65 MILLIGRAM, TABLET) [Concomitant]

REACTIONS (1)
  - Renal disorder [None]
